FAERS Safety Report 6334480-1 (Version None)
Quarter: 2009Q3

REPORT INFORMATION
  Report Type: 
  Country: None (occurrence: None)
  Receive Date: 20090827
  Receipt Date: 20090814
  Transmission Date: 20100115
  Serious: Yes (Other)
  Sender: FDA-Public Use
  Company Number: SPI200900265

PATIENT
  Age: 71 Year
  Sex: Female
  Weight: 102.9 kg

DRUGS (7)
  1. AMITIZA [Suspect]
     Indication: CONSTIPATION
     Dosage: 8 MCG, BID, ORAL
     Route: 048
     Dates: start: 20090801, end: 20090801
  2. AMITIZA [Suspect]
     Indication: CONSTIPATION
     Dosage: 8 MCG, BID, ORAL
     Route: 048
     Dates: start: 20090601
  3. AMITIZA [Suspect]
     Indication: CONSTIPATION
     Dosage: 8 MCG, BID, ORAL
     Route: 048
     Dates: start: 20090801
  4. PROTONIX [Concomitant]
  5. VALIUM [Concomitant]
  6. ASCORBIC ACID [Concomitant]
  7. CALCIUM (CALCIUM) [Concomitant]

REACTIONS (11)
  - ABDOMINAL DISCOMFORT [None]
  - ABDOMINAL DISTENSION [None]
  - DECREASED APPETITE [None]
  - FLATULENCE [None]
  - HEADACHE [None]
  - MALIGNANT OVARIAN CYST [None]
  - MASS [None]
  - NEUROPATHY PERIPHERAL [None]
  - ULNAR NERVE INJURY [None]
  - UNDERDOSE [None]
  - WEIGHT DECREASED [None]
